FAERS Safety Report 5067714-4 (Version None)
Quarter: 2006Q3

REPORT INFORMATION
  Report Type: 
  Country: None (occurrence: None)
  Receive Date: 20060728
  Receipt Date: 20060712
  Transmission Date: 20061208
  Serious: Yes (Other)
  Sender: FDA-Public Use
  Company Number: GR200604002190

PATIENT
  Age: 67 Year
  Sex: Female
  Weight: 68.9921 kg

DRUGS (7)
  1. TERIPARATIDE (TERIPARATIDE) PEN, DISPOSABLE [Suspect]
     Indication: OSTEOPOROSIS
     Dosage: 20 UG DIALY (1/D), SUBCUTANEOUS
     Route: 058
     Dates: start: 20041102, end: 20051205
  2. FORTEO PEN (FORTEO PEN) [Concomitant]
  3. METHOTREXATE [Concomitant]
  4. PREDNISOLONE [Concomitant]
  5. ALFACALCIDOL (ALFACALCIDOL) [Concomitant]
  6. CALCIUM (CALCIUM) [Concomitant]
  7. IMMUNOSUPPRESSIVE AGENTS [Concomitant]

REACTIONS (2)
  - CONDITION AGGRAVATED [None]
  - OVARIAN CANCER [None]
